FAERS Safety Report 7471099-3 (Version None)
Quarter: 2011Q2

REPORT INFORMATION
  Report Type: 
  Country: None (occurrence: None)
  Receive Date: 20110506
  Receipt Date: 20110506
  Transmission Date: 20111010
  Serious: Yes (Disabling, Other)
  Sender: FDA-Public Use
  Company Number: None

PATIENT
  Sex: Female
  Weight: 68.0396 kg

DRUGS (1)
  1. NASACORT [Suspect]
     Indication: MULTIPLE ALLERGIES
     Dosage: TWICE IN EACH NOSTRIL DAILY
     Dates: start: 20090801

REACTIONS (1)
  - ANOSMIA [None]
